FAERS Safety Report 7991048-9 (Version None)
Quarter: 2011Q4

REPORT INFORMATION
  Report Type: 
  Country: None (occurrence: None)
  Receive Date: 20111219
  Receipt Date: 20111213
  Transmission Date: 20120403
  Serious: Yes (Hospitalization, Other)
  Sender: FDA-Public Use
  Company Number: FI-ROCHE-619634

PATIENT
  Sex: Male
  Weight: 64 kg

DRUGS (4)
  1. MABTHERA [Suspect]
     Indication: RHEUMATOID ARTHRITIS
     Dosage: ROUTE REPORTED AS: IV INFUSION
     Route: 042
     Dates: start: 20061201, end: 20080401
  2. FINASTERIDE [Concomitant]
     Route: 048
  3. PREDNISONE TAB [Concomitant]
     Dosage: FREQUENCY: 1X, REPORTED AS PREDNISONE
     Route: 048
  4. FOSAMAX [Concomitant]
     Dosage: DRUG REPORTED AS GEFINA
     Route: 048

REACTIONS (3)
  - LYMPHOPENIA [None]
  - LUNG DISORDER [None]
  - CREST SYNDROME [None]
